FAERS Safety Report 6529845-9 (Version None)
Quarter: 2009Q4

REPORT INFORMATION
  Report Type: 
  Country: None (occurrence: None)
  Receive Date: 20091231
  Receipt Date: 20091215
  Transmission Date: 20100525
  Serious: Yes (Other)
  Sender: FDA-Public Use
  Company Number: AUR-APL-2009-01580

PATIENT
  Age: 47 Year
  Sex: Male

DRUGS (2)
  1. RIBAVIRIN [Suspect]
     Indication: HEPATITIS C
     Dosage: ORAL
     Route: 048
  2. PEG-INTERFERON ALFA 2A [Suspect]
     Indication: HEPATITIS C
     Dosage: SQ
     Route: 058

REACTIONS (5)
  - CATARACT NUCLEAR [None]
  - MYOPIA [None]
  - VISION BLURRED [None]
  - VISUAL ACUITY REDUCED [None]
  - VISUAL FIELD DEFECT [None]
